FAERS Safety Report 16445723 (Version 4)
Quarter: 2019Q3

REPORT INFORMATION
  Report Type: Spontaneous
  Country: US (occurrence: US)
  Receive Date: 20190618
  Receipt Date: 20190923
  Transmission Date: 20191004
  Serious: Yes (Hospitalization)
  Sender: FDA-Public Use
  Company Number: US-PFIZER INC-2019258996

PATIENT
  Age: 78 Year
  Sex: Female
  Weight: 52.61 kg

DRUGS (5)
  1. CYCLOBENZAPRINE. [Concomitant]
     Active Substance: CYCLOBENZAPRINE
     Dosage: 5 MG, 3X/DAY
  2. XELJANZ XR [Suspect]
     Active Substance: TOFACITINIB CITRATE
     Dosage: 11 MG, 1X/DAY
     Dates: start: 20190624, end: 20190725
  3. METHYLPREDNISOLONE. [Concomitant]
     Active Substance: METHYLPREDNISOLONE
     Dosage: 4 MG, UNK
  4. XELJANZ XR [Suspect]
     Active Substance: TOFACITINIB CITRATE
     Indication: BACK PAIN
     Dosage: UNK
  5. TRAMADOL. [Concomitant]
     Active Substance: TRAMADOL
     Dosage: UNK UNK, DAILY (1-4 TIMES DAILY)

REACTIONS (10)
  - Back pain [Unknown]
  - Product use in unapproved indication [Unknown]
  - Off label use [Unknown]
  - Peripheral swelling [Recovered/Resolved]
  - Groin pain [Unknown]
  - Pain in extremity [Unknown]
  - Spinal stenosis [Unknown]
  - Pain [Unknown]
  - Arthralgia [Unknown]
  - Condition aggravated [Not Recovered/Not Resolved]

NARRATIVE: CASE EVENT DATE: 20190601
